FAERS Safety Report 15007565 (Version 2)
Quarter: 2018Q3

REPORT INFORMATION
  Report Type: Spontaneous
  Country: CZ (occurrence: CZ)
  Receive Date: 20180613
  Receipt Date: 20180813
  Transmission Date: 20181010
  Serious: Yes (Hospitalization, Other)
  Sender: FDA-Public Use
  Company Number: CZ-CELGENEUS-CZE-20180510275

PATIENT
  Age: 70 Year
  Sex: Male

DRUGS (3)
  1. ABRAXANE [Suspect]
     Active Substance: PACLITAXEL
     Indication: ADENOCARCINOMA PANCREAS
     Dosage: 2/M
     Route: 041
     Dates: start: 201604, end: 201711
  2. GEMCITABINE [Suspect]
     Active Substance: GEMCITABINE\GEMCITABINE HYDROCHLORIDE
     Indication: ADENOCARCINOMA PANCREAS
     Route: 065
     Dates: start: 201306, end: 201402
  3. GEMCITABINE [Suspect]
     Active Substance: GEMCITABINE\GEMCITABINE HYDROCHLORIDE
     Route: 065
     Dates: start: 201604, end: 201711

REACTIONS (10)
  - Dehydration [Recovered/Resolved]
  - Cardiac failure [Recovered/Resolved]
  - Neutropenia [Unknown]
  - Weight increased [Unknown]
  - Renal failure [Recovered/Resolved]
  - Pneumonia [Recovered/Resolved]
  - Peripheral venous disease [Unknown]
  - Pancreatic carcinoma metastatic [Unknown]
  - Alopecia [Unknown]
  - Neck pain [Unknown]

NARRATIVE: CASE EVENT DATE: 201711
